FAERS Safety Report 19087436 (Version 3)
Quarter: 2021Q4

REPORT INFORMATION
  Report Type: Spontaneous
  Country: US (occurrence: US)
  Receive Date: 20210402
  Receipt Date: 20211124
  Transmission Date: 20220303
  Serious: Yes (Other)
  Sender: FDA-Public Use
  Company Number: US-PFIZER INC-2019126318

PATIENT
  Age: 64 Year
  Sex: Male
  Weight: 122.4 kg

DRUGS (5)
  1. XELJANZ XR [Suspect]
     Active Substance: TOFACITINIB CITRATE
     Indication: Arthritis
     Dosage: 11 MG, 1X/DAY
     Route: 048
     Dates: start: 20190320
  2. XELJANZ XR [Suspect]
     Active Substance: TOFACITINIB CITRATE
     Indication: Rheumatoid arthritis
     Dosage: 11 MG
     Dates: start: 20210112
  3. ULORIC [Concomitant]
     Active Substance: FEBUXOSTAT
     Indication: Blood uric acid increased
     Dosage: 80 MG, DAILY
  4. GABAPENTIN [Concomitant]
     Active Substance: GABAPENTIN
     Indication: Restless legs syndrome
     Dosage: 300 MG, DAILY
  5. PRAMIPEXOLE [Concomitant]
     Active Substance: PRAMIPEXOLE
     Indication: Restless legs syndrome
     Dosage: 1 MG, 2X/DAY

REACTIONS (7)
  - Renal failure [Unknown]
  - Renal impairment [Unknown]
  - Hepatic enzyme increased [Unknown]
  - Gastrooesophageal reflux disease [Unknown]
  - Therapeutic response unexpected [Unknown]
  - Pain [Unknown]
  - Blood uric acid increased [Unknown]
